FAERS Safety Report 9283226 (Version 1)
Quarter: 2013Q2

REPORT INFORMATION
  Report Type: Spontaneous
  Country: US (occurrence: US)
  Receive Date: 20130510
  Receipt Date: 20130510
  Transmission Date: 20140414
  Serious: No
  Sender: FDA-Public Use
  Company Number: US-GLAXOSMITHKLINE-A0989545A

PATIENT
  Age: 69 Year
  Sex: Female

DRUGS (15)
  1. TYKERB [Suspect]
     Indication: BREAST CANCER
     Dosage: 1000MG PER DAY
     Route: 048
     Dates: start: 20120808
  2. FEMARA [Concomitant]
  3. EVOXAC [Concomitant]
  4. DICLOFENAC POTASSIUM [Concomitant]
  5. FOLIC ACID [Concomitant]
  6. FUROSEMIDE [Concomitant]
  7. HERCEPTIN [Concomitant]
  8. NORTRIPTYLINE [Concomitant]
  9. PRILOSEC [Concomitant]
  10. POTASSIUM [Concomitant]
  11. SYNTHROID [Concomitant]
  12. ASPIRIN [Concomitant]
  13. CALCIUM [Concomitant]
  14. MELATONIN [Concomitant]
  15. MULTIVITAMIN [Concomitant]

REACTIONS (2)
  - Diarrhoea [Unknown]
  - Muscle spasms [Unknown]
